FAERS Safety Report 9550293 (Version 1)
Quarter: 2013Q3

REPORT INFORMATION
  Report Type: Spontaneous
  Country: US (occurrence: US)
  Receive Date: 20130924
  Receipt Date: 20130924
  Transmission Date: 20140515
  Serious: No
  Sender: FDA-Public Use
  Company Number: US-SANOFI-AVENTIS-2013SA072062

PATIENT
  Age: 46 Year
  Sex: Female

DRUGS (7)
  1. AUBAGIO [Suspect]
     Indication: MULTIPLE SCLEROSIS
     Route: 048
     Dates: start: 201303
  2. DETROL [Concomitant]
     Route: 065
  3. CLARINEX /USA/ [Concomitant]
     Route: 065
  4. WELLBUTRIN - SLOW RELEASE [Concomitant]
     Route: 065
  5. TRAZODONE [Concomitant]
     Route: 065
  6. LUNESTA [Concomitant]
     Route: 065
  7. FLEXERIL [Concomitant]
     Route: 065

REACTIONS (3)
  - Dizziness [Unknown]
  - Hypotension [Unknown]
  - White blood cell count decreased [Unknown]
